FAERS Safety Report 8329576-9 (Version None)
Quarter: 2012Q2

REPORT INFORMATION
  Report Type: 
  Country: None (occurrence: None)
  Receive Date: 20120502
  Receipt Date: 20120417
  Transmission Date: 20120825
  Serious: Yes (Hospitalization, Other)
  Sender: FDA-Public Use
  Company Number: DK-ARROW GEN-2012-07375

PATIENT
  Sex: Male
  Weight: 90 kg

DRUGS (1)
  1. LAMOTRIGINE [Suspect]
     Indication: EPILEPSY
     Dosage: 100 MG 4 TIMES/DAY
     Route: 048
     Dates: start: 20120315, end: 20120319

REACTIONS (3)
  - UPPER LIMB FRACTURE [None]
  - FALL [None]
  - EPILEPSY [None]
